FAERS Safety Report 9855753 (Version 2)
Quarter: 2014Q1

REPORT INFORMATION
  Report Type: Spontaneous
  Country: US (occurrence: US)
  Receive Date: 20140130
  Receipt Date: 20140320
  Transmission Date: 20141002
  Serious: No
  Sender: FDA-Public Use
  Company Number: US-009507513-1401USA003176

PATIENT
  Sex: Female
  Weight: 76.64 kg

DRUGS (7)
  1. DULERA [Suspect]
     Indication: ASTHMA
     Dosage: 200/ 5 MCG, TWO PUFFS, BID
     Route: 055
     Dates: start: 2012
  2. VENTOLIN (ALBUTEROL SULFATE) [Concomitant]
  3. LEVOTHYROXINE SODIUM [Concomitant]
     Route: 048
  4. PROZAC [Concomitant]
  5. CLONAZEPAM [Concomitant]
  6. ZOLPIDEM TARTRATE [Concomitant]
     Route: 048
  7. AZELASTINE HYDROCHLORIDE [Concomitant]

REACTIONS (2)
  - Headache [Recovered/Resolved]
  - Product quality issue [Unknown]
